FAERS Safety Report 22104447 (Version 3)
Quarter: 2024Q2

REPORT INFORMATION
  Report Type: Spontaneous
  Country: JP (occurrence: JP)
  Receive Date: 20230316
  Receipt Date: 20240520
  Transmission Date: 20240716
  Serious: Yes (Life-Threatening, Hospitalization, Other)
  Sender: FDA-Public Use
  Company Number: JP-SA-2023SA081010

PATIENT
  Age: 73 Year
  Sex: Female

DRUGS (4)
  1. GLIMEPIRIDE [Suspect]
     Active Substance: GLIMEPIRIDE
     Indication: Diabetes mellitus
     Dosage: 3 MG
     Route: 048
  2. ANAGLIPTIN [Suspect]
     Active Substance: ANAGLIPTIN
     Indication: Diabetes mellitus
  3. VOGLIBOSE [Suspect]
     Active Substance: VOGLIBOSE
     Indication: Diabetes mellitus
  4. METFORMIN HYDROCHLORIDE [Suspect]
     Active Substance: METFORMIN HYDROCHLORIDE
     Indication: Diabetes mellitus

REACTIONS (4)
  - Eye movement disorder [Recovered/Resolved]
  - Hypoglycaemic encephalopathy [Recovered/Resolved]
  - Hypoglycaemic coma [Recovered/Resolved]
  - Altered state of consciousness [Recovering/Resolving]

NARRATIVE: CASE EVENT DATE: 20220301
